FAERS Safety Report 5862999-6 (Version None)
Quarter: 2008Q3

REPORT INFORMATION
  Report Type: 
  Country: None (occurrence: None)
  Receive Date: 20080828
  Receipt Date: 20080819
  Transmission Date: 20090109
  Serious: Yes (Hospitalization)
  Sender: FDA-Public Use
  Company Number: GB-AVENTIS-200817920GDDC

PATIENT
  Age: 31 Year
  Sex: Female

DRUGS (10)
  1. RIFAMPICIN [Suspect]
     Dosage: DOSE: UNK
  2. CYCLOSPORINE [Suspect]
     Dosage: DOSE: UNK
  3. MYCOPHENOLIC ACID [Suspect]
     Indication: STEM CELL TRANSPLANT
     Dosage: DOSE: UNK
  4. ALEMTUZUMAB [Concomitant]
     Indication: STEM CELL TRANSPLANT
     Dosage: DOSE: UNK
  5. BUSULFAN [Concomitant]
     Indication: STEM CELL TRANSPLANT
     Dosage: DOSE: UNK
  6. CYCLOSPORINE [Concomitant]
     Indication: STEM CELL TRANSPLANT
     Dosage: DOSE: UNK
  7. CYTARABINE [Concomitant]
     Dosage: DOSE: UNK
  8. FLUDARABINE [Concomitant]
     Dosage: DOSE: UNK
  9. NEUPOGEN [Concomitant]
     Indication: STEM CELL TRANSPLANT
     Dosage: DOSE: UNK
  10. IDARUBICIN HCL [Concomitant]
     Indication: STEM CELL TRANSPLANT
     Dosage: DOSE: UNK

REACTIONS (13)
  - BLOOD ALKALINE PHOSPHATASE INCREASED [None]
  - BLOOD BILIRUBIN INCREASED [None]
  - C-REACTIVE PROTEIN INCREASED [None]
  - CSF BACTERIA IDENTIFIED [None]
  - HEPATITIS [None]
  - HYPOTENSION [None]
  - IMMUNOSUPPRESSANT DRUG LEVEL DECREASED [None]
  - LIVER FUNCTION TEST ABNORMAL [None]
  - LOSS OF CONSCIOUSNESS [None]
  - NAUSEA [None]
  - PYREXIA [None]
  - SYSTEMIC INFLAMMATORY RESPONSE SYNDROME [None]
  - VOMITING [None]
